FAERS Safety Report 10188881 (Version 1)
Quarter: 2014Q2

REPORT INFORMATION
  Report Type: Spontaneous
  Country: US (occurrence: US)
  Receive Date: 20140522
  Receipt Date: 20140522
  Transmission Date: 20141212
  Serious: No
  Sender: FDA-Public Use
  Company Number: US-SA-2014SA028145

PATIENT
  Age: 46 Year
  Sex: Male

DRUGS (4)
  1. LANTUS SOLOSTAR [Suspect]
     Indication: TYPE 2 DIABETES MELLITUS
     Dosage: TAKEN FROM- ONE AND HALF TO TWO YEARS, DOSE-28-30 UNITS
     Route: 058
  2. LANTUS SOLOSTAR [Suspect]
     Indication: TYPE 2 DIABETES MELLITUS
     Dosage: TAKEN FROM- ONE AND HALF TO TWO YEARS, DOSE-28-30 UNITS
     Route: 058
  3. SOLOSTAR [Concomitant]
     Indication: TYPE 2 DIABETES MELLITUS
     Dosage: TAKEN FROM- ONE AND HALF TO TWO YEARS
  4. SOLOSTAR [Concomitant]
     Indication: TYPE 2 DIABETES MELLITUS
     Dosage: TAKEN FROM- ONE AND HALF TO TWO YEARS

REACTIONS (2)
  - Feeling abnormal [Not Recovered/Not Resolved]
  - Inappropriate schedule of drug administration [Unknown]
